APPROVED DRUG PRODUCT: TASCENSO ODT
Active Ingredient: FINGOLIMOD LAURYL SULFATE
Strength: EQ 0.5MG BASE
Dosage Form/Route: TABLET, ORALLY DISINTEGRATING;ORAL
Application: N214962 | Product #002
Applicant: CYCLE PHARMACEUTICALS LTD
Approved: Dec 9, 2022 | RLD: Yes | RS: Yes | Type: RX

PATENTS:
Patent 10555902 | Expires: Jan 19, 2036
Patent 10925829 | Expires: Jan 19, 2036
Patent 9925138 | Expires: Jan 19, 2036